FAERS Safety Report 13930127 (Version 1)
Quarter: 2017Q3

REPORT INFORMATION
  Report Type: Spontaneous
  Country: CN (occurrence: CN)
  Receive Date: 20170901
  Receipt Date: 20170901
  Transmission Date: 20171127
  Serious: Yes (Other)
  Sender: FDA-Public Use
  Company Number: CN-PFIZER INC-2017374023

PATIENT
  Age: 75 Year
  Sex: Female

DRUGS (1)
  1. LYRICA [Suspect]
     Active Substance: PREGABALIN
     Indication: URAEMIC PRURITUS
     Dosage: 1 DF, 1X/DAY
     Route: 048
     Dates: start: 20170818, end: 20170820

REACTIONS (9)
  - Fractured coccyx [Unknown]
  - Spinal pain [Unknown]
  - Dysstasia [Unknown]
  - Product use in unapproved indication [Unknown]
  - Mobility decreased [Unknown]
  - Tremor [Unknown]
  - Fall [Unknown]
  - Lumbar vertebral fracture [Unknown]
  - Fractured sacrum [Unknown]
